FAERS Safety Report 8457982-0 (Version None)
Quarter: 2012Q2

REPORT INFORMATION
  Report Type: 
  Country: None (occurrence: None)
  Receive Date: 20120622
  Receipt Date: 20120612
  Transmission Date: 20120825
  Serious: Yes (Other)
  Sender: FDA-Public Use
  Company Number: US-JNJFOC-20120606915

PATIENT
  Age: 11 Year
  Sex: Male

DRUGS (2)
  1. REMICADE [Suspect]
     Indication: PRODUCT USED FOR UNKNOWN INDICATION
     Route: 042
     Dates: start: 20120201, end: 20120101
  2. REMICADE [Suspect]
     Route: 042
     Dates: start: 20110901

REACTIONS (4)
  - DYSPNOEA [None]
  - CHEST DISCOMFORT [None]
  - FLUSHING [None]
  - INFUSION RELATED REACTION [None]
